FAERS Safety Report 5469561-8 (Version None)
Quarter: 2007Q3

REPORT INFORMATION
  Report Type: 
  Country: None (occurrence: None)
  Receive Date: 20070925
  Receipt Date: 20070925
  Transmission Date: 20080115
  Serious: No
  Sender: FDA-Public Use
  Company Number: None

PATIENT
  Sex: Female
  Weight: 93.8946 kg

DRUGS (1)
  1. CYMBALTA [Suspect]
     Indication: BIPOLAR I DISORDER
     Dosage: 60 MG ONCE DAILY PO
     Route: 048
     Dates: start: 20070103, end: 20070909

REACTIONS (8)
  - ASTHENIA [None]
  - DIZZINESS [None]
  - DRUG WITHDRAWAL SYNDROME [None]
  - EDUCATIONAL PROBLEM [None]
  - HYPOAESTHESIA ORAL [None]
  - IMPAIRED WORK ABILITY [None]
  - PARAESTHESIA [None]
  - STOMACH DISCOMFORT [None]
